FAERS Safety Report 7978934-0 (Version None)
Quarter: 2011Q4

REPORT INFORMATION
  Report Type: 
  Country: None (occurrence: None)
  Receive Date: 20111214
  Receipt Date: 20111206
  Transmission Date: 20120403
  Serious: Yes (Hospitalization)
  Sender: FDA-Public Use
  Company Number: HK-TEVA-312921ISR

PATIENT
  Sex: Male
  Weight: 11.9 kg

DRUGS (9)
  1. ETOPOSIDE [Suspect]
     Indication: CHEMOTHERAPY
     Dosage: 49 MILLIGRAM;
     Route: 042
     Dates: start: 20110927, end: 20110927
  2. VORICONAZOLE [Suspect]
     Indication: SYSTEMIC CANDIDA
     Route: 048
     Dates: start: 20110822, end: 20110926
  3. LACTULOSE [Concomitant]
     Dates: start: 20110925, end: 20110925
  4. NAVOBAN [Concomitant]
     Dates: start: 20110926, end: 20110930
  5. POTASSIUM CHLORIDE [Concomitant]
     Dates: start: 20110925, end: 20110928
  6. MAGNESIUM SULFATE [Concomitant]
     Dates: start: 20110925, end: 20110926
  7. CISPLATIN [Suspect]
     Indication: CHEMOTHERAPY
     Dosage: 43 MILLIGRAM;
     Route: 042
     Dates: start: 20110926, end: 20110926
  8. CYCLOPHOSPHAMIDE [Suspect]
     Indication: CHEMOTHERAPY
  9. MANNITOL [Concomitant]
     Dates: start: 20110926, end: 20110926

REACTIONS (1)
  - FEBRILE NEUTROPENIA [None]
